FAERS Safety Report 20969397 (Version 2)
Quarter: 2022Q3

REPORT INFORMATION
  Report Type: Spontaneous
  Country: US (occurrence: None)
  Receive Date: 20220616
  Receipt Date: 20220712
  Transmission Date: 20221026
  Serious: No
  Sender: FDA-Public Use
  Company Number: 2022A196156

PATIENT
  Age: 69 Year
  Sex: Male
  Weight: 86.2 kg

DRUGS (2)
  1. CALQUENCE [Suspect]
     Active Substance: ACALABRUTINIB
     Indication: Non-Hodgkin^s lymphoma
     Route: 048
     Dates: start: 20211015
  2. TYLENOL [Concomitant]
     Active Substance: ACETAMINOPHEN

REACTIONS (14)
  - Abdominal distension [Recovered/Resolved]
  - Cough [Recovered/Resolved]
  - Tremor [Not Recovered/Not Resolved]
  - Full blood count abnormal [Recovered/Resolved]
  - Lymphadenopathy [Not Recovered/Not Resolved]
  - Headache [Recovered/Resolved]
  - Nausea [Recovered/Resolved]
  - Abdominal pain upper [Recovered/Resolved]
  - Asthenia [Unknown]
  - Constipation [Recovered/Resolved]
  - Muscle spasms [Recovered/Resolved]
  - Increased tendency to bruise [Not Recovered/Not Resolved]
  - Symptom recurrence [Recovered/Resolved]
  - Product use in unapproved indication [Unknown]

NARRATIVE: CASE EVENT DATE: 20210101
